FAERS Safety Report 18555441 (Version 1)
Quarter: 2020Q4

REPORT INFORMATION
  Report Type: Spontaneous
  Country: AU (occurrence: AU)
  Receive Date: 20201127
  Receipt Date: 20201127
  Transmission Date: 20210114
  Serious: Yes (Other)
  Sender: FDA-Public Use
  Company Number: AU-OTSUKA-2020_029238

PATIENT
  Age: 39 Year
  Sex: Male

DRUGS (18)
  1. ZUCLOPENTHIXOL [Suspect]
     Active Substance: ZUCLOPENTHIXOL
     Dosage: 300 MG, UNK
     Route: 065
  2. HALDOL DECANOATE [Suspect]
     Active Substance: HALOPERIDOL DECANOATE
     Indication: PRODUCT USED FOR UNKNOWN INDICATION
     Dosage: UNK
     Route: 065
  3. RISPERDAL [Suspect]
     Active Substance: RISPERIDONE
     Indication: PRODUCT USED FOR UNKNOWN INDICATION
     Dosage: UNK
     Route: 065
  4. ZUCLOPENTHIXOL [Suspect]
     Active Substance: ZUCLOPENTHIXOL
     Dosage: 350 MG, UNK
     Route: 065
  5. SAPHRIS [Suspect]
     Active Substance: ASENAPINE MALEATE
     Indication: PRODUCT USED FOR UNKNOWN INDICATION
     Dosage: UNK
     Route: 065
  6. ZYPREXA [Suspect]
     Active Substance: OLANZAPINE
     Indication: TOBACCO USER
  7. ZYPREXA [Suspect]
     Active Substance: OLANZAPINE
     Indication: ALCOHOL USE
  8. ZYPREXA [Suspect]
     Active Substance: OLANZAPINE
     Indication: FEAR
  9. ZUCLOPENTHIXOL [Suspect]
     Active Substance: ZUCLOPENTHIXOL
     Indication: PRODUCT USED FOR UNKNOWN INDICATION
     Dosage: 200 MG, UNK
     Route: 065
  10. ZUCLOPENTHIXOL [Suspect]
     Active Substance: ZUCLOPENTHIXOL
     Dosage: 250 MG, UNK
     Route: 065
  11. PALIPERIDONE. [Suspect]
     Active Substance: PALIPERIDONE
     Indication: PRODUCT USED FOR UNKNOWN INDICATION
     Dosage: UNK
     Route: 065
     Dates: start: 2014
  12. ZYPREXA [Suspect]
     Active Substance: OLANZAPINE
     Indication: ANXIETY
     Dosage: 20 MG, UNK
     Route: 065
  13. ABILIFY MAINTENA [Suspect]
     Active Substance: ARIPIPRAZOLE
     Indication: PRODUCT USED FOR UNKNOWN INDICATION
     Dosage: UNK
     Route: 065
  14. ZUCLOPENTHIXOL [Suspect]
     Active Substance: ZUCLOPENTHIXOL
     Dosage: 400 MG, UNK
     Route: 065
  15. SEROQUEL [Suspect]
     Active Substance: QUETIAPINE FUMARATE
     Indication: PRODUCT USED FOR UNKNOWN INDICATION
     Dosage: UNK
     Route: 065
  16. LATUDA [Suspect]
     Active Substance: LURASIDONE HYDROCHLORIDE
     Indication: PRODUCT USED FOR UNKNOWN INDICATION
     Dosage: UNK
     Route: 065
  17. ZYPREXA [Suspect]
     Active Substance: OLANZAPINE
     Indication: SUBSTANCE USE
     Dosage: 10 MG, UNK
     Route: 065
     Dates: start: 2002
  18. ZYPREXA [Suspect]
     Active Substance: OLANZAPINE
     Indication: AGITATION

REACTIONS (20)
  - Burning sensation [Unknown]
  - Chest pain [Unknown]
  - Alcohol use disorder [Unknown]
  - Loss of consciousness [Recovered/Resolved]
  - Dizziness [Unknown]
  - Pain [Unknown]
  - Altered state of consciousness [Unknown]
  - Deafness [Unknown]
  - Akathisia [Unknown]
  - Withdrawal syndrome [Unknown]
  - Restlessness [Unknown]
  - Sedation [Recovered/Resolved]
  - Sexual dysfunction [Unknown]
  - Malaise [Unknown]
  - Psychotic disorder [Unknown]
  - Hypertension [Unknown]
  - Blindness [Unknown]
  - Agitation [Unknown]
  - Anxiety [Unknown]
  - Suicidal ideation [Unknown]
